FAERS Safety Report 19793292 (Version 1)
Quarter: 2021Q3

REPORT INFORMATION
  Report Type: Report from Study
  Country: US (occurrence: US)
  Receive Date: 20210906
  Receipt Date: 20210906
  Transmission Date: 20211014
  Serious: Yes (Other)
  Sender: FDA-Public Use
  Company Number: US-SHIRE-US202012611

PATIENT
  Sex: Female

DRUGS (2)
  1. CUVITRU [Suspect]
     Active Substance: HUMAN IMMUNOGLOBULIN G
     Indication: IMMUNODEFICIENCY COMMON VARIABLE
     Dosage: UNK
     Route: 065
  2. OXYGEN. [Concomitant]
     Active Substance: OXYGEN
     Dosage: UNK
     Route: 065

REACTIONS (15)
  - Pathogen resistance [Unknown]
  - Cardiac disorder [Unknown]
  - Asthma [Unknown]
  - Diabetes mellitus [Unknown]
  - Rhinitis [Unknown]
  - Hyperhidrosis [Unknown]
  - Pancreatitis [Unknown]
  - Foot fracture [Unknown]
  - Splenomegaly [Unknown]
  - Aortic aneurysm [Unknown]
  - Alpha-1 antitrypsin deficiency [Unknown]
  - Fall [Unknown]
  - Staphylococcal infection [Unknown]
  - Spinal fracture [Unknown]
  - Fatigue [Unknown]
